FAERS Safety Report 4722290-8 (Version None)
Quarter: 2005Q3

REPORT INFORMATION
  Report Type: 
  Country: None (occurrence: None)
  Receive Date: 20050722
  Receipt Date: 20041011
  Transmission Date: 20060218
  Serious: No
  Sender: FDA-Public Use
  Company Number: US-GLAXOSMITHKLINE-A0529334A

PATIENT
  Age: 69 Year
  Sex: Female

DRUGS (10)
  1. AVANDIA [Suspect]
     Dosage: 8MG PER DAY
     Route: 048
  2. LASIX [Concomitant]
  3. LISINOPRIL [Concomitant]
  4. SECTRAL [Concomitant]
  5. XANAX [Concomitant]
  6. AMARYL [Concomitant]
  7. GLUCOPHAGE [Concomitant]
  8. BEXTRA [Concomitant]
  9. ASPIRIN [Concomitant]
  10. POTASSIUM CHLORIDE [Concomitant]

REACTIONS (1)
  - JOINT SWELLING [None]
